FAERS Safety Report 6094975-5 (Version None)
Quarter: 2009Q1

REPORT INFORMATION
  Report Type: 
  Country: None (occurrence: None)
  Receive Date: 20090227
  Receipt Date: 20090209
  Transmission Date: 20090719
  Serious: Yes (Other)
  Sender: FDA-Public Use
  Company Number: GR-PFIZER INC-2009174241

PATIENT

DRUGS (3)
  1. AROMASIN [Suspect]
     Dosage: 25 MG, 1X/DAY
     Route: 048
  2. FUROSEMIDE [Concomitant]
     Dosage: 40 MG, 1X/DAY
  3. PLAVIX [Concomitant]
     Dosage: 32 MG, 1X/DAY

REACTIONS (1)
  - VASCULITIC RASH [None]
